FAERS Safety Report 13535996 (Version 1)
Quarter: 2017Q2

REPORT INFORMATION
  Report Type: Spontaneous
  Country: US (occurrence: US)
  Receive Date: 20170511
  Receipt Date: 20170511
  Transmission Date: 20170830
  Serious: Yes (Disabling)
  Sender: FDA-Public Use
  Company Number: None

PATIENT
  Age: 44 Year
  Sex: Female
  Weight: 47.25 kg

DRUGS (4)
  1. TROVAFLOXACIN [Suspect]
     Active Substance: TROVAFLOXACIN
     Indication: CYST
     Route: 048
     Dates: start: 19930501
  2. TROVAFLOXACIN [Suspect]
     Active Substance: TROVAFLOXACIN
     Indication: CELLULITIS
     Route: 048
     Dates: start: 19930501
  3. VITAMIN B [Concomitant]
     Active Substance: VITAMIN B
  4. VITAMIN D [Concomitant]
     Active Substance: CHOLECALCIFEROL

REACTIONS (18)
  - Malabsorption [None]
  - Gastrointestinal disorder [None]
  - Cataract [None]
  - Drug ineffective [None]
  - Thoracic outlet syndrome [None]
  - Photophobia [None]
  - Fatigue [None]
  - Tinnitus [None]
  - Faeces soft [None]
  - Myalgia [None]
  - Hepatic function abnormal [None]
  - Spinal disorder [None]
  - Altered state of consciousness [None]
  - Eye pain [None]
  - Asthenia [None]
  - Feeling abnormal [None]
  - Faeces pale [None]
  - Presbyopia [None]

NARRATIVE: CASE EVENT DATE: 19990501
